FAERS Safety Report 8009946-9 (Version None)
Quarter: 2011Q4

REPORT INFORMATION
  Report Type: 
  Country: None (occurrence: None)
  Receive Date: 20111228
  Receipt Date: 20111219
  Transmission Date: 20120403
  Serious: Yes (Hospitalization, Other)
  Sender: FDA-Public Use
  Company Number: PHEH2006US15272

PATIENT
  Sex: Male

DRUGS (31)
  1. AMBIEN [Concomitant]
  2. HYDROCHLOROTHIAZIDE [Concomitant]
  3. ACYCLOVIR [Concomitant]
  4. KLONOPIN [Concomitant]
  5. CLONIDINE [Concomitant]
  6. COLACE [Concomitant]
  7. MELPHALAN HYDROCHLORIDE [Concomitant]
  8. DILTIAZEM HCL [Concomitant]
  9. PROCARDIA [Concomitant]
     Dosage: 60 MG, UNK
  10. VANCOMYCIN HYCHLORIDE [Concomitant]
  11. ZOSYN [Concomitant]
  12. NEURONTIN [Concomitant]
  13. AMITRIPTYLINE [Concomitant]
  14. FIORICET [Concomitant]
  15. CEFTRIAXONE [Concomitant]
  16. NORVASC [Concomitant]
  17. LIPITOR [Concomitant]
  18. OXYCODONE HCL AND ACETAMINOPHEN [Concomitant]
  19. PERCOCET [Concomitant]
  20. AMOXICILLIN [Concomitant]
  21. ASPIRIN [Concomitant]
     Dosage: 325 MG, UNK
  22. LEVAQUIN [Concomitant]
     Dosage: 500 MG, UNK
  23. AREDIA [Suspect]
  24. ZOMETA [Suspect]
     Indication: MULTIPLE MYELOMA
  25. DIOVAN [Concomitant]
     Indication: HYPERTENSION
  26. FERROUS SULFATE TAB [Concomitant]
  27. AMPICILLIN [Concomitant]
  28. CEFEPIME [Concomitant]
  29. TRAZODONE HCL [Concomitant]
  30. LISINOPRIL [Concomitant]
  31. CIPROFLOXACIN [Concomitant]

REACTIONS (52)
  - OSTEONECROSIS OF JAW [None]
  - DECREASED INTEREST [None]
  - NEURITIS [None]
  - SUBCUTANEOUS ABSCESS [None]
  - CEREBROVASCULAR ACCIDENT [None]
  - OSTEOMYELITIS [None]
  - GENERAL PHYSICAL HEALTH DETERIORATION [None]
  - POST THROMBOTIC SYNDROME [None]
  - OROPHARYNGEAL PAIN [None]
  - INTERVERTEBRAL DISC SPACE NARROWING [None]
  - BLOOD GLUCOSE INCREASED [None]
  - CEREBRAL ARTERIOSCLEROSIS [None]
  - URINARY TRACT INFECTION [None]
  - MENINGITIS ASEPTIC [None]
  - TOOTH INFECTION [None]
  - TENDERNESS [None]
  - ARTHRALGIA [None]
  - HYPONATRAEMIA [None]
  - SCOLIOSIS [None]
  - TRICUSPID VALVE INCOMPETENCE [None]
  - ATAXIA [None]
  - OEDEMA PERIPHERAL [None]
  - JOINT SWELLING [None]
  - BURSITIS [None]
  - JOINT RANGE OF MOTION DECREASED [None]
  - POST CONCUSSION SYNDROME [None]
  - ANAEMIA [None]
  - VIITH NERVE PARALYSIS [None]
  - MUSCULAR WEAKNESS [None]
  - CARDIAC VALVE VEGETATION [None]
  - SINUS BRADYCARDIA [None]
  - ANXIETY [None]
  - DEEP VEIN THROMBOSIS [None]
  - OSTEOARTHRITIS [None]
  - FASCIITIS [None]
  - INTERVERTEBRAL DISC DEGENERATION [None]
  - CEREBRAL INFARCTION [None]
  - LEFT VENTRICULAR HYPERTROPHY [None]
  - ACUTE POLYNEUROPATHY [None]
  - WALDENSTROM'S MACROGLOBULINAEMIA [None]
  - HYPERVISCOSITY SYNDROME [None]
  - SWELLING [None]
  - TENDONITIS [None]
  - BLOOD ALKALINE PHOSPHATASE INCREASED [None]
  - CELLULITIS [None]
  - PAIN [None]
  - PRIMARY SEQUESTRUM [None]
  - MENISCUS LESION [None]
  - GAIT DISTURBANCE [None]
  - SINUS TARSI SYNDROME [None]
  - HYPERTENSION [None]
  - HYPERGAMMAGLOBULINAEMIA [None]
